FAERS Safety Report 15764727 (Version 2)
Quarter: 2019Q1

REPORT INFORMATION
  Report Type: Report from Study
  Country: TW (occurrence: TW)
  Receive Date: 20181227
  Receipt Date: 20190102
  Transmission Date: 20190417
  Serious: Yes (Hospitalization)
  Sender: FDA-Public Use
  Company Number: TW-ROCHE-2234755

PATIENT
  Age: 75 Year
  Sex: Male

DRUGS (5)
  1. BOKEY [Concomitant]
     Route: 048
     Dates: start: 20180509
  2. ACETYLCYSTEINE. [Concomitant]
     Active Substance: ACETYLCYSTEINE
     Route: 048
     Dates: start: 20180508
  3. ATEZOLIZUMAB. [Suspect]
     Active Substance: ATEZOLIZUMAB
     Indication: RENAL CELL CARCINOMA
     Dosage: ON 17 DEC 2018, MOST RECENT DOSE WAS RECIEVED PRIOR TO AE AND SAE ONSET.
     Route: 042
     Dates: start: 20180522
  4. ULSTOP (TAIWAN) [Concomitant]
     Route: 048
     Dates: start: 20180521
  5. NORVASC [Concomitant]
     Active Substance: AMLODIPINE BESYLATE
     Route: 048
     Dates: start: 20180511

REACTIONS (3)
  - Dizziness [Not Recovered/Not Resolved]
  - Vomiting [Not Recovered/Not Resolved]
  - Vertigo [Not Recovered/Not Resolved]

NARRATIVE: CASE EVENT DATE: 20181218
